FAERS Safety Report 7499824-6 (Version None)
Quarter: 2011Q2

REPORT INFORMATION
  Report Type: 
  Country: None (occurrence: None)
  Receive Date: 20110517
  Receipt Date: 20110510
  Transmission Date: 20111010
  Serious: Yes (Other)
  Sender: FDA-Public Use
  Company Number: 2011SP021228

PATIENT
  Age: 35 Year
  Sex: Male

DRUGS (6)
  1. ACAMPROSATE CALCIUM [Concomitant]
  2. DIAZEPAM [Concomitant]
  3. MIRTAZAPINE [Suspect]
     Indication: PRODUCT USED FOR UNKNOWN INDICATION
     Dosage: 30 MG;QD;PO
     Route: 048
     Dates: start: 20100917, end: 20101022
  4. ESCITALOPRAM [Concomitant]
  5. BACLOFEN [Concomitant]
  6. THIAMINE [Concomitant]

REACTIONS (1)
  - HEPATITIS ACUTE [None]
